FAERS Safety Report 5012431-X (Version None)
Quarter: 2006Q2

REPORT INFORMATION
  Report Type: 
  Country: None (occurrence: None)
  Receive Date: 20060411
  Receipt Date: 20060308
  Transmission Date: 20061013
  Serious: No
  Sender: FDA-Public Use
  Company Number: 2006S1000049

PATIENT
  Age: 30 Year
  Sex: Female
  Weight: 94 kg

DRUGS (5)
  1. CUBICIN [Suspect]
     Indication: STAPHYLOCOCCAL BACTERAEMIA
     Dosage: 500 MG;TIW;IV
     Route: 042
  2. HEPARIN [Concomitant]
  3. PHOSLO [Concomitant]
  4. IRON [Concomitant]
  5. SEVELAMER [Concomitant]

REACTIONS (2)
  - CONTUSION [None]
  - PLATELET COUNT DECREASED [None]
